FAERS Safety Report 6104418-0 (Version None)
Quarter: 2009Q1

REPORT INFORMATION
  Report Type: 
  Country: None (occurrence: None)
  Receive Date: 20090305
  Receipt Date: 20090222
  Transmission Date: 20090719
  Serious: Yes (Death, Other)
  Sender: FDA-Public Use
  Company Number: AU-BAXTER-2009BH000748

PATIENT
  Sex: Male

DRUGS (2)
  1. EXTRANEAL [Suspect]
     Indication: PERITONEAL DIALYSIS
     Route: 033
  2. FRESENIUS PERITONEAL DIALYSIS SOLUTIONS [Concomitant]
     Indication: PERITONEAL DIALYSIS
     Route: 065

REACTIONS (2)
  - DEATH [None]
  - PERITONITIS [None]
